FAERS Safety Report 24121263 (Version 1)
Quarter: 2024Q3

REPORT INFORMATION
  Report Type: Report from Study
  Country: US (occurrence: None)
  Receive Date: 20240722
  Receipt Date: 20240722
  Transmission Date: 20241017
  Serious: Yes (Other)
  Sender: ASTRAZENECA
  Company Number: 2020SF40804

PATIENT
  Sex: Male

DRUGS (4)
  1. LYNPARZA [Suspect]
     Active Substance: OLAPARIB
     Route: 048
  2. LYNPARZA [Suspect]
     Active Substance: OLAPARIB
     Route: 048
  3. LYNPARZA [Suspect]
     Active Substance: OLAPARIB
     Route: 048
  4. LYNPARZA [Suspect]
     Active Substance: OLAPARIB
     Dosage: ONE 100MG TABLET AND ONE 150MG TABLET
     Route: 048

REACTIONS (3)
  - Haemoglobin abnormal [Unknown]
  - Red blood cell count abnormal [Unknown]
  - White blood cell count abnormal [Unknown]
